FAERS Safety Report 6824933-1 (Version None)
Quarter: 2010Q3

REPORT INFORMATION
  Report Type: 
  Country: None (occurrence: None)
  Receive Date: 20100708
  Receipt Date: 20070129
  Transmission Date: 20110219
  Serious: Yes (Other)
  Sender: FDA-Public Use
  Company Number: US-PFIZER INC-2007001341

PATIENT
  Sex: Female
  Weight: 81.6 kg

DRUGS (1)
  1. CHANTIX [Suspect]
     Indication: EX-TOBACCO USER
     Dates: start: 20061101, end: 20061229

REACTIONS (3)
  - HEAD TITUBATION [None]
  - MEMORY IMPAIRMENT [None]
  - OVERWEIGHT [None]
